FAERS Safety Report 15906205 (Version 1)
Quarter: 2019Q1

REPORT INFORMATION
  Report Type: Spontaneous
  Country: US (occurrence: US)
  Receive Date: 20190111
  Receipt Date: 20190111
  Transmission Date: 20190417
  Serious: No
  Sender: FDA-Public Use
  Company Number: None

PATIENT
  Age: 75 Year
  Sex: Female
  Weight: 68.04 kg

DRUGS (9)
  1. ASTORVASTIN [Concomitant]
  2. CITRACAL [Concomitant]
     Active Substance: CALCIUM CITRATE
  3. BUTAL-ACETMIN [Concomitant]
  4. POTASSIUM [Concomitant]
     Active Substance: POTASSIUM
  5. IBANDRONATE NA 150 MG TAB [Suspect]
     Active Substance: IBANDRONATE SODIUM
     Indication: OSTEOPOROSIS
     Dosage: ?          OTHER ROUTE:ONCE A MONTH?
     Route: 048
     Dates: start: 201803, end: 201804
  6. SUMATRIPTAN. [Concomitant]
     Active Substance: SUMATRIPTAN
  7. TRAZODONE HYDROCHLORIDE. [Concomitant]
     Active Substance: TRAZODONE HYDROCHLORIDE
  8. IBANDRONATE NA 150 MG TAB [Suspect]
     Active Substance: IBANDRONATE SODIUM
     Indication: ARTHRITIS
     Dosage: ?          OTHER ROUTE:ONCE A MONTH?
     Route: 048
     Dates: start: 201803, end: 201804
  9. VITAMIN D [Concomitant]
     Active Substance: CHOLECALCIFEROL

REACTIONS (2)
  - Dental caries [None]
  - Tooth abscess [None]

NARRATIVE: CASE EVENT DATE: 201803
